FAERS Safety Report 5253967-6 (Version None)
Quarter: 2007Q1

REPORT INFORMATION
  Report Type: 
  Country: None (occurrence: None)
  Receive Date: 20070228
  Receipt Date: 20070228
  Transmission Date: 20070707
  Serious: Yes (Hospitalization)
  Sender: FDA-Public Use
  Company Number: None

PATIENT
  Sex: Male
  Weight: 56.4275 kg

DRUGS (9)
  1. CLOZAPINE [Suspect]
     Indication: DEMENTIA
     Dosage: 37.5 MG QHS NGT OR PO
     Route: 048
     Dates: start: 20070126, end: 20070201
  2. M.V.I. [Concomitant]
  3. CIPRO [Concomitant]
  4. REMERON [Concomitant]
  5. MIRALAX [Concomitant]
  6. DEPAKENE [Concomitant]
  7. MEGACE [Concomitant]
  8. COREG [Concomitant]
  9. LISINOPRIL [Concomitant]

REACTIONS (5)
  - ASPIRATION [None]
  - BRAIN NATRIURETIC PEPTIDE INCREASED [None]
  - DYSPHAGIA [None]
  - HYPOTENSION [None]
  - MITRAL VALVE INCOMPETENCE [None]
